FAERS Safety Report 4697524-9 (Version None)
Quarter: 2005Q2

REPORT INFORMATION
  Report Type: 
  Country: None (occurrence: None)
  Receive Date: 20050622
  Receipt Date: 20050617
  Transmission Date: 20051028
  Serious: Yes (Hospitalization)
  Sender: FDA-Public Use
  Company Number: FR-MERCK-0506FRA00077

PATIENT
  Age: 85 Year
  Sex: Male

DRUGS (5)
  1. STROMECTOL [Suspect]
     Indication: ACARODERMATITIS
     Route: 048
  2. LORAZEPAM [Suspect]
     Route: 048
     Dates: end: 20041015
  3. ALLOPURINOL [Suspect]
     Route: 048
     Dates: end: 20041015
  4. OLANZAPINE [Suspect]
     Route: 048
     Dates: end: 20041015
  5. CLOPIDOGREL BISULFATE [Suspect]
     Route: 048
     Dates: end: 20041015

REACTIONS (2)
  - ENCEPHALOPATHY [None]
  - MYOCLONUS [None]
